FAERS Safety Report 13207210 (Version 1)
Quarter: 2017Q1

REPORT INFORMATION
  Report Type: Spontaneous
  Country: US (occurrence: US)
  Receive Date: 20170209
  Receipt Date: 20170209
  Transmission Date: 20170428
  Serious: No
  Sender: FDA-Public Use
  Company Number: US-SA-2016SA231246

PATIENT
  Sex: Male

DRUGS (5)
  1. PRALUENT [Suspect]
     Active Substance: ALIROCUMAB
     Route: 065
  2. NITROGLYCERIN. [Concomitant]
     Active Substance: NITROGLYCERIN
     Route: 060
  3. LOSARTAN. [Concomitant]
     Active Substance: LOSARTAN
  4. PLAVIX [Concomitant]
     Active Substance: CLOPIDOGREL BISULFATE
  5. ALIROCUMAB PREFILLED PEN [Concomitant]
     Active Substance: ALIROCUMAB

REACTIONS (2)
  - Paraesthesia [Unknown]
  - Muscle spasms [Unknown]
